FAERS Safety Report 8043029-7 (Version None)
Quarter: 2012Q1

REPORT INFORMATION
  Report Type: 
  Country: None (occurrence: None)
  Receive Date: 20120112
  Receipt Date: 20120109
  Transmission Date: 20120608
  Serious: Yes (Death, Other)
  Sender: FDA-Public Use
  Company Number: PHHY2011CA113357

PATIENT
  Age: 56 Year
  Sex: Female

DRUGS (4)
  1. HYDROXYUREA [Concomitant]
     Dosage: 500 MG, BID
     Route: 065
  2. IMATINIB MESYLATE [Suspect]
     Dosage: 100 MG, DAILY
     Route: 048
  3. HYDROXYUREA [Concomitant]
     Dosage: 1500 MG, UNK
     Route: 065
  4. PREDNISOLONE [Concomitant]
     Dosage: 50 MG, DAILY
     Route: 065

REACTIONS (6)
  - ACUTE LUNG INJURY [None]
  - MYOCARDIAL ISCHAEMIA [None]
  - DYSPNOEA [None]
  - THROMBOSIS [None]
  - DRUG INEFFECTIVE [None]
  - DEATH [None]
